FAERS Safety Report 8659389 (Version 3)
Quarter: 2012Q4

REPORT INFORMATION
  Report Type: Report from Study
  Country: CA (occurrence: CA)
  Receive Date: 20120711
  Receipt Date: 20121105
  Transmission Date: 20130627
  Serious: Yes (Death, Life-Threatening, Hospitalization, Other)
  Sender: FDA-Public Use
  Company Number: CA-GENZYME-THYM-1003325

PATIENT
  Age: 59 Year
  Sex: Male
  Weight: 59 kg

DRUGS (10)
  1. THYMOGLOBULINE [Suspect]
     Indication: PROPHYLAXIS AGAINST GRAFT VERSUS HOST DISEASE
     Dosage: 0.5 mg/kg, qd
     Route: 042
     Dates: start: 20101228, end: 20101228
  2. THYMOGLOBULINE [Suspect]
     Dosage: 2 mg/kg, qd
     Route: 042
     Dates: start: 20101229, end: 20101229
  3. THYMOGLOBULINE [Suspect]
     Dosage: 2 mg/kg, qd
     Route: 042
     Dates: start: 20101230, end: 20101230
  4. PARIET [Concomitant]
     Indication: PRODUCT USED FOR UNKNOWN INDICATION
     Dosage: UNK
     Route: 065
  5. DAPSONE [Concomitant]
     Indication: PRODUCT USED FOR UNKNOWN INDICATION
     Dosage: UNK
     Route: 065
  6. PREDNISONE [Concomitant]
     Indication: PRODUCT USED FOR UNKNOWN INDICATION
     Dosage: UNK
     Route: 065
  7. TACROLIMUS [Concomitant]
     Indication: PRODUCT USED FOR UNKNOWN INDICATION
     Dosage: UNK
     Route: 065
  8. FLUCONAZOLE [Concomitant]
     Indication: PRODUCT USED FOR UNKNOWN INDICATION
     Dosage: UNK
     Route: 065
  9. RISEDRONIC ACID [Concomitant]
     Indication: PRODUCT USED FOR UNKNOWN INDICATION
     Dosage: UNK
     Route: 065
  10. CITALOPRAM [Concomitant]
     Indication: PRODUCT USED FOR UNKNOWN INDICATION
     Dosage: UNK
     Route: 065

REACTIONS (8)
  - Graft versus host disease [Recovered/Resolved with Sequelae]
  - Multi-organ failure [Fatal]
  - Cholecystitis [Not Recovered/Not Resolved]
  - Thrombocytopenia [Fatal]
  - Renal injury [Fatal]
  - Nephritic syndrome [Recovered/Resolved with Sequelae]
  - Hyperglycaemia [Fatal]
  - Sepsis [Recovered/Resolved]
